FAERS Safety Report 24075276 (Version 1)
Quarter: 2024Q3

REPORT INFORMATION
  Report Type: Spontaneous
  Country: FR (occurrence: None)
  Receive Date: 20240710
  Receipt Date: 20240710
  Transmission Date: 20241017
  Serious: Yes (Death, Other)
  Sender: ASTRAZENECA
  Company Number: 2024A157035

PATIENT
  Age: 68 Year
  Sex: Male

DRUGS (2)
  1. DURVALUMAB [Suspect]
     Active Substance: DURVALUMAB
     Indication: Non-small cell lung cancer
     Dosage: (10 MG/KG Q2W) 24
     Dates: start: 20190825, end: 20200831
  2. CARBOPLATIN\PACLITAXEL [Concomitant]
     Active Substance: CARBOPLATIN\PACLITAXEL
     Dosage: AUC5 + 175 MG/M2 FIRST AND SECOND THEN CONCO AUC2 45 MG/M2
     Dates: start: 20190415, end: 20190715

REACTIONS (5)
  - Cardio-respiratory arrest [Fatal]
  - Haemoptysis [Fatal]
  - Radiation pneumonitis [Unknown]
  - Dysphagia [Unknown]
  - Nephritis [Unknown]
